FAERS Safety Report 9019741 (Version 2)
Quarter: 2013Q1

REPORT INFORMATION
  Report Type: Spontaneous
  Country: CN (occurrence: CN)
  Receive Date: 20130118
  Receipt Date: 20130124
  Transmission Date: 20140127
  Serious: Yes (Hospitalization)
  Sender: FDA-Public Use
  Company Number: CN-PFIZER INC-2013020800

PATIENT
  Age: 58 Year
  Sex: Female
  Weight: 85 kg

DRUGS (6)
  1. LIPITOR [Suspect]
     Dosage: 40 MG, DAILY
     Route: 048
  2. ZOCOR [Suspect]
     Dosage: 40 MG, DAILY
     Route: 048
  3. DIOVAN ^NOVARTIS^ [Concomitant]
     Dosage: 160 MG, DAILY
     Route: 048
  4. PLAVIX [Concomitant]
     Dosage: 75 MG, DAILY
     Route: 048
  5. METFORMIN HYDROCHLORIDE [Concomitant]
     Dosage: 0.5 G, 3X/DAY
     Route: 048
  6. CONCOR [Concomitant]
     Dosage: 5 MG, DAILY

REACTIONS (4)
  - Drug-induced liver injury [Recovering/Resolving]
  - Muscle injury [Recovering/Resolving]
  - Asthenia [Recovering/Resolving]
  - Myalgia [Recovering/Resolving]
